FAERS Safety Report 9280721 (Version 2)
Quarter: 2013Q2

REPORT INFORMATION
  Report Type: Spontaneous
  Country: US (occurrence: US)
  Receive Date: 20130509
  Receipt Date: 20130610
  Transmission Date: 20140414
  Serious: No
  Sender: FDA-Public Use
  Company Number: US-PFIZER INC-2013139182

PATIENT
  Age: 78 Year
  Sex: Female

DRUGS (2)
  1. XALATAN [Suspect]
     Dosage: UNK
  2. LUMIGAN [Suspect]
     Dosage: UNK

REACTIONS (2)
  - Drug hypersensitivity [Unknown]
  - Eye inflammation [Unknown]
